FAERS Safety Report 8221112-0 (Version None)
Quarter: 2012Q1

REPORT INFORMATION
  Report Type: 
  Country: None (occurrence: None)
  Receive Date: 20120320
  Receipt Date: 20120313
  Transmission Date: 20120608
  Serious: Yes (Other)
  Sender: FDA-Public Use
  Company Number: ES-TEVA-328487ISR

PATIENT
  Age: 37 Year
  Sex: Female

DRUGS (1)
  1. COPAXONE [Suspect]
     Indication: MULTIPLE SCLEROSIS
     Dosage: 20 MILLIGRAM;
     Route: 058
     Dates: start: 20100521, end: 20120217

REACTIONS (4)
  - INJECTION SITE INFLAMMATION [None]
  - SKIN ULCER [None]
  - NECROSIS [None]
  - INJECTION SITE OEDEMA [None]
